FAERS Safety Report 9917438 (Version 1)
Quarter: 2014Q1

REPORT INFORMATION
  Report Type: Spontaneous
  Country: US (occurrence: US)
  Receive Date: 20140221
  Receipt Date: 20140221
  Transmission Date: 20141002
  Serious: No
  Sender: FDA-Public Use
  Company Number: US-PFIZER INC-2014049614

PATIENT
  Sex: Female

DRUGS (1)
  1. PRISTIQ [Suspect]
     Dosage: SPLITTING THE DESVENLAFAXINE 100MG TABLETS IN HALF AND TAKING HALF A TABLET PER DAY

REACTIONS (2)
  - Nightmare [Unknown]
  - Intentional drug misuse [Unknown]
